FAERS Safety Report 16853531 (Version 11)
Quarter: 2020Q1

REPORT INFORMATION
  Report Type: Spontaneous
  Country: PL (occurrence: PL)
  Receive Date: 20190926
  Receipt Date: 20200204
  Transmission Date: 20200409
  Serious: Yes (Other)
  Sender: FDA-Public Use
  Company Number: PL-AUROBINDO-AUR-APL-2019-060662

PATIENT
  Age: 73 Year
  Sex: Male

DRUGS (26)
  1. INDAPAMIDE. [Suspect]
     Active Substance: INDAPAMIDE
     Indication: CARDIOVASCULAR DISORDER
  2. INDAPAMIDE. [Concomitant]
     Active Substance: INDAPAMIDE
     Indication: HYPERTENSION
     Dosage: 1.5 MILLIGRAM, DAILY
     Route: 065
  3. LOSARTAN POTASSIUM. [Suspect]
     Active Substance: LOSARTAN POTASSIUM
     Indication: HYPERTENSION
     Dosage: 100 MILLIGRAM, ONCE A DAY
     Route: 048
  4. ATORVASTATIN [Suspect]
     Active Substance: ATORVASTATIN
     Indication: CARDIAC FAILURE
  5. NAPROXEN 220 MG [Suspect]
     Active Substance: NAPROXEN
     Dosage: UNK
     Route: 048
  6. NAPROXEN. [Suspect]
     Active Substance: NAPROXEN
     Indication: ARTHRALGIA
     Dosage: UNK
     Route: 048
  7. DICLOFENAC [Suspect]
     Active Substance: DICLOFENAC
     Indication: MUSCULAR WEAKNESS
     Dosage: THE DOSAGE DEPENDED ON THE SEVERITY OF THE PATIENT^S PAIN UNK
     Route: 061
  8. LOSARTAN POTASSIUM. [Suspect]
     Active Substance: LOSARTAN POTASSIUM
     Indication: CARDIAC FAILURE
  9. ATORVASTATIN [Suspect]
     Active Substance: ATORVASTATIN
     Indication: HYPERTENSION
     Dosage: 20 MILLIGRAM, ONCE A DAY
     Route: 065
  10. NAPROXEN. [Suspect]
     Active Substance: NAPROXEN
     Indication: MUSCULAR WEAKNESS
     Dosage: UNK
     Route: 061
  11. LOSARTAN POTASSIUM. [Suspect]
     Active Substance: LOSARTAN POTASSIUM
     Indication: CARDIOVASCULAR DISORDER
  12. NAPROXEN. [Suspect]
     Active Substance: NAPROXEN
     Dosage: THE DOSAGE DEPENDED ON THE SEVERITY OF THE PATIENT^S PAIN
     Route: 061
  13. DICLOFENAC [Suspect]
     Active Substance: DICLOFENAC
     Indication: ARTHRALGIA
     Dosage: UNK
     Route: 048
  14. POTASSIUM [Suspect]
     Active Substance: POTASSIUM
     Indication: HYPERTENSION
     Dosage: UNK
     Route: 065
  15. ATORVASTATIN [Suspect]
     Active Substance: ATORVASTATIN
     Indication: CARDIOVASCULAR DISORDER
  16. NAPROXEN 220 MG [Suspect]
     Active Substance: NAPROXEN
     Indication: ARTHRALGIA
     Dosage: UNK
     Route: 061
  17. NEBIVOLOL. [Suspect]
     Active Substance: NEBIVOLOL
     Indication: CARDIOVASCULAR DISORDER
  18. NEBIVOLOL. [Suspect]
     Active Substance: NEBIVOLOL
     Indication: HYPERTENSION
     Dosage: 5 MILLIGRAM, ONCE A DAY
     Route: 065
  19. PERINDOPRIL TABLET [Suspect]
     Active Substance: PERINDOPRIL
     Indication: HYPERTENSION
     Dosage: 5 MILLIGRAM, DAILY
     Route: 048
  20. INDAPAMIDE. [Suspect]
     Active Substance: INDAPAMIDE
     Indication: CARDIAC FAILURE
     Dosage: 1.5 MILLIGRAM, ONCE A DAY
     Route: 065
  21. INDAPAMIDE. [Suspect]
     Active Substance: INDAPAMIDE
     Indication: HYPERTENSION
  22. NEBIVOLOL. [Suspect]
     Active Substance: NEBIVOLOL
     Indication: CARDIAC FAILURE
  23. PERINDOPRIL TABLET [Suspect]
     Active Substance: PERINDOPRIL
     Indication: CARDIAC FAILURE
  24. ASA [Suspect]
     Active Substance: ASPIRIN
     Indication: CARDIAC FAILURE
     Dosage: 75 MILLIGRAM, ONCE A DAY
     Route: 065
  25. ASA [Suspect]
     Active Substance: ASPIRIN
     Indication: HYPERTENSION
  26. ASA [Suspect]
     Active Substance: ASPIRIN
     Indication: CARDIOVASCULAR DISORDER

REACTIONS (6)
  - Hyperkalaemia [Recovered/Resolved]
  - Cough [Unknown]
  - Muscular weakness [Recovered/Resolved]
  - Drug intolerance [Unknown]
  - Electrocardiogram T wave abnormal [Unknown]
  - Electrocardiogram T wave amplitude increased [Unknown]

NARRATIVE: CASE EVENT DATE: 2019
